FAERS Safety Report 21768196 (Version 2)
Quarter: 2023Q1

REPORT INFORMATION
  Report Type: Spontaneous
  Country: FR (occurrence: FR)
  Receive Date: 20221222
  Receipt Date: 20230105
  Transmission Date: 20230417
  Serious: Yes (Life-Threatening, Hospitalization)
  Sender: FDA-Public Use
  Company Number: FR-TEVA-2022-FR-2838316

PATIENT
  Age: 1 Year
  Sex: Male

DRUGS (5)
  1. DIAZEPAM [Suspect]
     Active Substance: DIAZEPAM
     Indication: Status epilepticus
     Dosage: RECEIVED 3 DOSES
     Route: 065
  2. PHENYTOIN [Suspect]
     Active Substance: PHENYTOIN
     Indication: Status epilepticus
     Dosage: 15 MG/KG
     Route: 042
  3. PHENYTOIN [Suspect]
     Active Substance: PHENYTOIN
     Dosage: AS MAINTENANCE DOSE, 5 MG/KG
     Route: 042
  4. CLONAZEPAM [Concomitant]
     Active Substance: CLONAZEPAM
     Indication: Status epilepticus
     Route: 042
  5. PHENOBARBITAL [Concomitant]
     Active Substance: PHENOBARBITAL
     Indication: Status epilepticus
     Route: 042

REACTIONS (11)
  - Nystagmus [Recovered/Resolved]
  - Coma [Recovered/Resolved]
  - Cardiogenic shock [Recovered/Resolved]
  - Cerebellar ataxia [Recovered/Resolved]
  - Mutism [Recovered/Resolved]
  - Cerebellar atrophy [Recovered/Resolved]
  - Cerebellar haemorrhage [Recovered/Resolved]
  - Myoclonic epilepsy [Recovered/Resolved]
  - Toxicity to various agents [Recovered/Resolved]
  - Overdose [Unknown]
  - Drug ineffective [Unknown]
